FAERS Safety Report 5745488-9 (Version None)
Quarter: 2008Q2

REPORT INFORMATION
  Report Type: 
  Country: None (occurrence: None)
  Receive Date: 20080521
  Receipt Date: 20080509
  Transmission Date: 20081010
  Serious: Yes (Hospitalization, Other)
  Sender: FDA-Public Use
  Company Number: US-ELI_LILLY_AND_COMPANY-US200805001925

PATIENT
  Sex: Female
  Weight: 49.433 kg

DRUGS (1)
  1. CYMBALTA [Suspect]
     Dosage: 30 MG, UNK
     Route: 048
     Dates: start: 20080505, end: 20080506

REACTIONS (8)
  - AMMONIA INCREASED [None]
  - BALANCE DISORDER [None]
  - CONFUSIONAL STATE [None]
  - DELUSION [None]
  - FALL [None]
  - FEELING ABNORMAL [None]
  - LOSS OF CONSCIOUSNESS [None]
  - MALAISE [None]
